FAERS Safety Report 8016837-6 (Version None)
Quarter: 2012Q1

REPORT INFORMATION
  Report Type: 
  Country: None (occurrence: None)
  Receive Date: 20120102
  Receipt Date: 20111221
  Transmission Date: 20120608
  Serious: Yes (Hospitalization, Other)
  Sender: FDA-Public Use
  Company Number: JP-NOVOPROD-340927

PATIENT

DRUGS (13)
  1. LEVEMIR [Suspect]
     Indication: DIABETES MELLITUS
     Dosage: 6 U, TID
     Route: 058
     Dates: start: 20111021
  2. DEPAS [Concomitant]
     Dosage: 1 MG, UNK
     Route: 048
  3. HUMULIN R [Concomitant]
  4. NOVORAPID CHU FLEXPEN [Suspect]
     Indication: DIABETES MELLITUS
     Dosage: 6 U, QD
     Route: 058
     Dates: start: 20111020
  5. VANCOMYCIN [Concomitant]
     Dosage: 1 MG, UNK
     Route: 058
     Dates: start: 20111031, end: 20111111
  6. MEROPENEM [Concomitant]
     Dosage: 1.5MG/DR
     Dates: start: 20111116
  7. HUMULIN N [Concomitant]
  8. SEFIROM [Concomitant]
     Dosage: 2 MG, UNK
     Route: 058
     Dates: start: 20111027, end: 20111028
  9. LANSOPRAZOLE [Concomitant]
     Dosage: 30 MG, UNK
     Route: 048
  10. ZYVOX [Concomitant]
     Dosage: 1.2 MG, UNK
     Route: 058
     Dates: start: 20111026, end: 20111031
  11. MOTILIUM [Concomitant]
     Dosage: 30 MG, UNK
     Route: 048
  12. ZOLPIDEM [Concomitant]
     Dosage: 10 MG, UNK
     Route: 048
  13. RISPERDAL [Concomitant]
     Dosage: 1 MG, UNK
     Route: 048

REACTIONS (5)
  - RASH [None]
  - TOXIC SKIN ERUPTION [None]
  - OSTEOMYELITIS [None]
  - PYREXIA [None]
  - SEPSIS [None]
